FAERS Safety Report 14273477 (Version 1)
Quarter: 2017Q4

REPORT INFORMATION
  Report Type: Spontaneous
  Country: US (occurrence: US)
  Receive Date: 20171211
  Receipt Date: 20171211
  Transmission Date: 20180321
  Serious: No
  Sender: FDA-Public Use
  Company Number: US-ELI_LILLY_AND_COMPANY-US201711013224

PATIENT
  Sex: Female
  Weight: 68.4 kg

DRUGS (1)
  1. CYMBALTA [Suspect]
     Active Substance: DULOXETINE HYDROCHLORIDE
     Indication: MIGRAINE
     Dosage: 60 MG, UNKNOWN
     Route: 065
     Dates: start: 2008

REACTIONS (2)
  - Weight increased [Unknown]
  - Off label use [Unknown]
